FAERS Safety Report 4381194-3 (Version None)
Quarter: 2004Q2

REPORT INFORMATION
  Report Type: 
  Country: None (occurrence: None)
  Receive Date: 20040617
  Receipt Date: 20040617
  Transmission Date: 20050107
  Serious: Yes (Other)
  Sender: FDA-Public Use
  Company Number: None

PATIENT
  Age: 77 Year
  Sex: Female

DRUGS (9)
  1. TAMOXIFEN [Suspect]
  2. CLONIDINE HCL [Concomitant]
  3. ASPIRIN [Concomitant]
  4. .. [Concomitant]
  5. MIACALCIN [Concomitant]
  6. HYDROCHLOROX [Concomitant]
  7. PAXIL [Concomitant]
  8. CARTIA XT [Concomitant]
  9. VIOXX [Concomitant]

REACTIONS (1)
  - LUNG NEOPLASM MALIGNANT [None]
